FAERS Safety Report 6013091-1 (Version None)
Quarter: 2008Q4

REPORT INFORMATION
  Report Type: 
  Country: None (occurrence: None)
  Receive Date: 20081219
  Receipt Date: 20081210
  Transmission Date: 20090506
  Serious: Yes (Hospitalization, Other)
  Sender: FDA-Public Use
  Company Number: US-WYE-H07141108

PATIENT
  Sex: Female
  Weight: 65.83 kg

DRUGS (4)
  1. PRISTIQ [Suspect]
     Indication: DEPRESSION
     Route: 048
     Dates: start: 20080901, end: 20081127
  2. PEPCID [Concomitant]
     Indication: GASTRIC DISORDER
     Dosage: UNKNOWN
     Dates: start: 20081001
  3. IRON [Concomitant]
     Indication: RED BLOOD CELL COUNT DECREASED
     Dosage: UNKNOWN
  4. XANAX [Concomitant]
     Indication: ANXIETY
     Dosage: UNKNOWN

REACTIONS (7)
  - ASTHENIA [None]
  - CONDITION AGGRAVATED [None]
  - DEHYDRATION [None]
  - HAEMORRHAGE [None]
  - MELAENA [None]
  - RED BLOOD CELL COUNT DECREASED [None]
  - TINNITUS [None]
